FAERS Safety Report 9121838 (Version 2)
Quarter: 2013Q2

REPORT INFORMATION
  Report Type: Spontaneous
  Country: US (occurrence: US)
  Receive Date: 20130227
  Receipt Date: 20130509
  Transmission Date: 20140414
  Serious: No
  Sender: FDA-Public Use
  Company Number: US-BIOGENIDEC-2013BI016272

PATIENT
  Age: 55 Year
  Sex: Female

DRUGS (1)
  1. AVONEX [Suspect]
     Indication: MULTIPLE SCLEROSIS
     Route: 030
     Dates: start: 20110214

REACTIONS (4)
  - Injection site bruising [Recovered/Resolved]
  - Influenza like illness [Not Recovered/Not Resolved]
  - Anxiety [Recovered/Resolved]
  - Pain [Unknown]
